FAERS Safety Report 21754445 (Version 2)
Quarter: 2022Q4

REPORT INFORMATION
  Report Type: Spontaneous
  Country: JP (occurrence: JP)
  Receive Date: 20221220
  Receipt Date: 20221228
  Transmission Date: 20230113
  Serious: Yes (Hospitalization, Other)
  Sender: FDA-Public Use
  Company Number: JP-PFIZER INC-PV202200126622

PATIENT
  Age: 61 Year
  Sex: Male
  Weight: 56.7 kg

DRUGS (1)
  1. LORBRENA [Suspect]
     Active Substance: LORLATINIB
     Indication: Lung adenocarcinoma
     Dosage: 100 MG, DAILY
     Route: 048
     Dates: start: 20221115, end: 20221125

REACTIONS (6)
  - Intentional self-injury [Unknown]
  - Hallucination [Recovering/Resolving]
  - Hallucination, auditory [Recovering/Resolving]
  - Nervous system disorder [Recovering/Resolving]
  - Dysphoria [Recovering/Resolving]
  - Mental disorder [Recovering/Resolving]

NARRATIVE: CASE EVENT DATE: 20221125
